FAERS Safety Report 20374930 (Version 1)
Quarter: 2022Q1

REPORT INFORMATION
  Report Type: Spontaneous
  Country: US (occurrence: None)
  Receive Date: 20220124
  Receipt Date: 20220124
  Transmission Date: 20220423
  Serious: No
  Sender: FDA-Public Use
  Company Number: None

PATIENT
  Age: 77 Year
  Sex: Female
  Weight: 77.4 kg

DRUGS (15)
  1. EVEROLIMUS [Suspect]
     Active Substance: EVEROLIMUS
     Indication: Breast cancer
     Dosage: FREQUENCY : DAILY;?
     Route: 048
     Dates: start: 20211231
  2. Acetaminophen 325mg [Concomitant]
  3. ALLOPURINOL [Concomitant]
     Active Substance: ALLOPURINOL
  4. Arimidex 1mg [Concomitant]
  5. Vitamin D3 25mcg [Concomitant]
  6. PROLIA [Concomitant]
     Active Substance: DENOSUMAB
  7. GLIMEPIRIDE [Concomitant]
     Active Substance: GLIMEPIRIDE
  8. HYDROCHLOROTHIAZIDE [Concomitant]
     Active Substance: HYDROCHLOROTHIAZIDE
  9. LORAZEPAM [Concomitant]
     Active Substance: LORAZEPAM
  10. LOSARTAN [Concomitant]
     Active Substance: LOSARTAN
  11. SIMVASTATIN [Concomitant]
     Active Substance: SIMVASTATIN
  12. JANUVIA [Concomitant]
     Active Substance: SITAGLIPTIN PHOSPHATE
  13. Pepcid 40mg [Concomitant]
  14. ANASTROZOLE [Concomitant]
     Active Substance: ANASTROZOLE
  15. CALTRATE 600+D [Concomitant]

REACTIONS (1)
  - Hypertension [None]

NARRATIVE: CASE EVENT DATE: 20220124
